FAERS Safety Report 19746040 (Version 5)
Quarter: 2022Q2

REPORT INFORMATION
  Report Type: Report from Study
  Country: US (occurrence: US)
  Receive Date: 20210825
  Receipt Date: 20220622
  Transmission Date: 20220721
  Serious: No
  Sender: FDA-Public Use
  Company Number: US-NOVARTISTESTPH-NVSC2021US185350

PATIENT
  Sex: Male

DRUGS (1)
  1. COSENTYX [Suspect]
     Active Substance: SECUKINUMAB
     Indication: Psoriasis
     Dosage: 300 MG, QMO
     Route: 058

REACTIONS (6)
  - Arthralgia [Unknown]
  - Erythema [Unknown]
  - Skin plaque [Unknown]
  - Skin irritation [Unknown]
  - Skin burning sensation [Unknown]
  - Hypersensitivity [Unknown]
